FAERS Safety Report 5619406-8 (Version None)
Quarter: 2008Q1

REPORT INFORMATION
  Report Type: 
  Country: None (occurrence: None)
  Receive Date: 20080114
  Receipt Date: 20070209
  Transmission Date: 20080703
  Serious: Yes (Other)
  Sender: FDA-Public Use
  Company Number: A03200701248

PATIENT
  Sex: Female

DRUGS (2)
  1. PLAVIX [Suspect]
     Indication: STENT PLACEMENT
     Dosage: 600 MG ONCE - ORAL
     Route: 048
     Dates: start: 20070129, end: 20070130
  2. PLAVIX [Suspect]
     Indication: STENT PLACEMENT
     Dosage: ORAL
     Route: 048

REACTIONS (4)
  - DYSURIA [None]
  - HAEMORRHAGE URINARY TRACT [None]
  - OVERDOSE [None]
  - URETHRAL OBSTRUCTION [None]
